FAERS Safety Report 9548151 (Version 1)
Quarter: 2013Q3

REPORT INFORMATION
  Report Type: Spontaneous
  Country: CA (occurrence: None)
  Receive Date: 20130920
  Receipt Date: 20130920
  Transmission Date: 20140515
  Serious: Yes (Hospitalization)
  Sender: FDA-Public Use
  Company Number: INT_00298_2013

PATIENT
  Age: 55 Year
  Sex: Female

DRUGS (5)
  1. CEFTAZIDIME [Suspect]
     Indication: MENINGITIS BACTERIAL
     Dosage: (DF)
  2. VANCOMYCIN [Suspect]
     Indication: MENINGITIS BACTERIAL
     Dosage: (DF)(RE-ADMINISTERED ON DAY 22, DURNG THE REACTION))2DAYS UNIL NOT CONTINUING, UNKNOWN
  3. CEFTRIAXONE [Suspect]
     Indication: PRODUCT USED FOR UNKNOWN INDICATION
     Dosage: IN VITRO  TEST, DF)
  4. MEROPENEM [Suspect]
     Indication: PRODUCT USED FOR UNKNOWN INDICATION
     Dosage: (IN VITRO, TEST DF)(UNKNOWN)
  5. CIPROFLOXACIN [Concomitant]

REACTIONS (2)
  - Drug reaction with eosinophilia and systemic symptoms [None]
  - Histiocytosis haematophagic [None]
